FAERS Safety Report 17881637 (Version 5)
Quarter: 2020Q4

REPORT INFORMATION
  Report Type: Spontaneous
  Country: US (occurrence: US)
  Receive Date: 20200610
  Receipt Date: 20201028
  Transmission Date: 20210113
  Serious: No
  Sender: FDA-Public Use
  Company Number: US-SA-2020SA148315

PATIENT

DRUGS (1)
  1. DUPIXENT [Suspect]
     Active Substance: DUPILUMAB
     Indication: ASTHMA
     Dosage: 300 MG, QOW
     Route: 058
     Dates: start: 20200428

REACTIONS (9)
  - Vision blurred [Unknown]
  - Injection site irritation [Unknown]
  - Injection site erythema [Unknown]
  - Eye infection [Unknown]
  - Injection site dryness [Unknown]
  - Headache [Unknown]
  - Ocular hyperaemia [Unknown]
  - Injection site reaction [Unknown]
  - Eyelid margin crusting [Unknown]

NARRATIVE: CASE EVENT DATE: 2020
